FAERS Safety Report 22074717 (Version 1)
Quarter: 2023Q1

REPORT INFORMATION
  Report Type: Spontaneous
  Country: JP (occurrence: JP)
  Receive Date: 20230308
  Receipt Date: 20230308
  Transmission Date: 20230418
  Serious: Yes (Death)
  Sender: FDA-Public Use
  Company Number: JP-BAYER-2023A027232

PATIENT
  Age: 9 Decade
  Sex: Female

DRUGS (1)
  1. VERICIGUAT HYDROCHLORIDE [Suspect]
     Active Substance: VERICIGUAT HYDROCHLORIDE
     Indication: Chronic right ventricular failure
     Dosage: 2.5 MILLIGRAM, FILM-COATED TABLET
     Dates: start: 20230111

REACTIONS (1)
  - Chronic right ventricular failure [Fatal]
